FAERS Safety Report 11665366 (Version 5)
Quarter: 2022Q2

REPORT INFORMATION
  Report Type: Report from Study
  Country: NL (occurrence: NL)
  Receive Date: 20151027
  Receipt Date: 20220512
  Transmission Date: 20220720
  Serious: Yes (Hospitalization)
  Sender: FDA-Public Use
  Company Number: None

PATIENT
  Age: 83 Year
  Sex: Male

DRUGS (16)
  1. PRADAXA [Suspect]
     Active Substance: DABIGATRAN ETEXILATE MESYLATE
     Indication: Atrial fibrillation
     Route: 048
  2. ESOMEPRAZOL/ESOMEPRAZOL TABLET MSR 20MG / Brand name not specified [Concomitant]
     Indication: Product used for unknown indication
     Route: 048
     Dates: start: 20140101
  3. ESOMEPRAZOL/ESOMEPRAZOL TABLET MSR 20MG / Brand name not specified [Concomitant]
     Dosage: 1DD1  UNIT DOSE - 1 DOSAGE FORM
     Route: 048
     Dates: start: 20040101
  4. MAGNESIUM CITRATE [Concomitant]
     Active Substance: MAGNESIUM CITRATE
     Indication: Product used for unknown indication
     Dosage: DOSERING NIET BEKEND
     Route: 048
  5. CRANBERRY [Concomitant]
     Active Substance: CRANBERRY
     Indication: Product used for unknown indication
     Dosage: DOSERING NIET BEKEND
     Route: 048
  6. 1120 GLUCOSAMINE + CHONDROITINE [Concomitant]
     Indication: Product used for unknown indication
     Dosage: DOSERING NIET BEKEND
     Route: 048
  7. FISH OIL [Concomitant]
     Active Substance: FISH OIL
     Indication: Product used for unknown indication
     Route: 065
  8. TAMSULOSIN/TAMSULOSINE TABLET MGA 0,4MG / Brand name not specified [Concomitant]
     Indication: Product used for unknown indication
     Route: 048
     Dates: start: 20140101
  9. TAMSULOSIN/TAMSULOSINE TABLET MGA 0,4MG / Brand name not specified [Concomitant]
     Route: 048
     Dates: start: 20040101
  10. visolie [Concomitant]
     Indication: Product used for unknown indication
     Dosage: DOSERING NIET BEKEND
     Route: 048
  11. FLECAINIDE/ FLECAINIDE TABLET  50MG / Brand name not specified- [Concomitant]
     Indication: Product used for unknown indication
     Route: 065
     Dates: start: 20150501
  12. FLECAINIDE/ FLECAINIDE TABLET  50MG / Brand name not specified- [Concomitant]
     Dosage: 2  DF
     Route: 048
  13. FLECAINIDE/ FLECAINIDE TABLET  50MG / Brand name not specified- [Concomitant]
     Route: 048
  14. DESLORATADINE/DESLORATADINE TABLET 5MG / Brand name not specified [Concomitant]
     Indication: Product used for unknown indication
     Route: 065
     Dates: start: 20140101
  15. DESLORATADINE/DESLORATADINE TABLET 5MG / Brand name not specified [Concomitant]
     Dosage: 1DF
     Route: 048
     Dates: start: 20040101
  16. VOLCOLON/PLANTAGO OVATA GRANULAAT 3,6G / VOLCOLON GRANULAAT SUIKERVRIJ [Concomitant]
     Indication: Product used for unknown indication
     Dosage: GRANULATE SUGAR FREE
     Route: 065
     Dates: start: 20100101

REACTIONS (6)
  - Procedural haemorrhage [Not Recovered/Not Resolved]
  - Post procedural complication [Not Recovered/Not Resolved]
  - Haematuria [Not Recovered/Not Resolved]
  - Haematuria [Not Recovered/Not Resolved]
  - Contusion [Unknown]
  - Dysphagia [Unknown]

NARRATIVE: CASE EVENT DATE: 20150720
